FAERS Safety Report 6516448-5 (Version None)
Quarter: 2009Q4

REPORT INFORMATION
  Report Type: 
  Country: None (occurrence: None)
  Receive Date: 20091223
  Receipt Date: 20091215
  Transmission Date: 20100525
  Serious: Yes (Other)
  Sender: FDA-Public Use
  Company Number: US-JNJFOC-20091204696

PATIENT
  Sex: Female
  Weight: 67.13 kg

DRUGS (4)
  1. GOLIMUMAB [Suspect]
     Indication: PSORIATIC ARTHROPATHY
     Route: 058
  2. DICLOFENAC [Concomitant]
  3. AMBIEN [Concomitant]
     Indication: SLEEP DISORDER THERAPY
  4. ZOLOFT [Concomitant]
     Indication: DEPRESSION

REACTIONS (1)
  - MULTIPLE SCLEROSIS [None]
